FAERS Safety Report 14480156 (Version 1)
Quarter: 2018Q1

REPORT INFORMATION
  Report Type: Spontaneous
  Country: DE (occurrence: DE)
  Receive Date: 20180202
  Receipt Date: 20180202
  Transmission Date: 20180509
  Serious: Yes (Life-Threatening, Disabling)
  Sender: FDA-Public Use
  Company Number: DE-AMGEN-DEUSP2018013520

PATIENT
  Age: 23 Year
  Sex: Male
  Weight: 94 kg

DRUGS (1)
  1. FILGRASTIM [Suspect]
     Active Substance: FILGRASTIM
     Indication: PRODUCT USED FOR UNKNOWN INDICATION
     Dosage: 2 DF, UNK (DAILY DOSE: 2 DF DOSAGE FORM EVERY TOTAL; (IN TOTAL)
     Route: 065

REACTIONS (2)
  - Metastases to lymph nodes [Not Recovered/Not Resolved]
  - Testis cancer [Not Recovered/Not Resolved]

NARRATIVE: CASE EVENT DATE: 201704
